FAERS Safety Report 5878435-X (Version None)
Quarter: 2008Q3

REPORT INFORMATION
  Report Type: 
  Country: None (occurrence: None)
  Receive Date: 20080909
  Receipt Date: 20080829
  Transmission Date: 20090109
  Serious: Yes (Life-Threatening, Hospitalization)
  Sender: FDA-Public Use
  Company Number: WAES 0808FRA00008

PATIENT
  Age: 47 Year
  Sex: Male

DRUGS (11)
  1. CAP VORINOSTAT [Suspect]
     Indication: NON-SMALL CELL LUNG CANCER
     Dosage: 400 MG/DAILY
     Route: 048
     Dates: start: 20080623, end: 20080706
  2. CISPLATIN [Suspect]
     Indication: NON-SMALL CELL LUNG CANCER
     Dosage: 146 MG/DAILY
     Route: 042
     Dates: start: 20080625, end: 20080625
  3. CISPLATIN [Suspect]
     Indication: NON-SMALL CELL LUNG CANCER
     Dosage: 146 MG/DAILY
     Route: 042
     Dates: start: 20080717, end: 20080717
  4. GEMCITABINE [Suspect]
     Indication: NON-SMALL CELL LUNG CANCER
     Dosage: 2430 MG/DAILY
     Route: 042
     Dates: start: 20080625, end: 20080625
  5. GEMCITABINE [Suspect]
     Indication: NON-SMALL CELL LUNG CANCER
     Dosage: 2430 MG/DAILY
     Route: 042
     Dates: start: 20080702, end: 20080702
  6. GEMCITABINE [Suspect]
     Indication: NON-SMALL CELL LUNG CANCER
     Dosage: 2430 MG/DAILY
     Route: 042
     Dates: start: 20080717, end: 20080717
  7. GEMCITABINE [Suspect]
     Indication: NON-SMALL CELL LUNG CANCER
     Dosage: 2430 MG/DAILY
     Route: 042
     Dates: start: 20080724, end: 20080724
  8. FLUTICASONE PROPIONATE (+) SALMETEROL XI [Concomitant]
  9. METOCLOPRAMIDE HYDROCHLORIDE [Concomitant]
  10. ONDANSETRON [Concomitant]
  11. PREDNISOLONE [Concomitant]

REACTIONS (5)
  - CARDIAC DISORDER [None]
  - DISEASE PROGRESSION [None]
  - PLEURAL EFFUSION [None]
  - PULMONARY EMBOLISM [None]
  - VENOUS THROMBOSIS LIMB [None]
